FAERS Safety Report 11175218 (Version 4)
Quarter: 2015Q3

REPORT INFORMATION
  Report Type: Report from Study
  Country: IT (occurrence: IT)
  Receive Date: 20150609
  Receipt Date: 20150813
  Transmission Date: 20151125
  Serious: Yes (Hospitalization)
  Sender: FDA-Public Use
  Company Number: PHHY2015IT066651

PATIENT
  Age: 43 Year
  Sex: Male
  Weight: 64 kg

DRUGS (9)
  1. ZOLEDRONATE [Suspect]
     Active Substance: ZOLEDRONIC ACID
     Indication: HYPERCALCAEMIA
     Dosage: 15 MG, ONCE SINGLE DOSE
     Route: 042
     Dates: start: 20150318, end: 20150318
  2. SUTENT [Suspect]
     Active Substance: SUNITINIB MALATE
     Indication: PANCREATIC NEUROENDOCRINE TUMOUR
     Dosage: 37.5 MG
     Route: 048
     Dates: start: 20130614, end: 20150307
  3. DELTACORTENE [Concomitant]
     Active Substance: PREDNISONE
     Indication: INFLAMMATION
     Dosage: UNK
     Route: 065
     Dates: start: 20140515, end: 20150319
  4. INSULIN [Concomitant]
     Active Substance: INSULIN NOS
     Indication: HYPERGLYCAEMIA
     Dosage: UNK
     Route: 065
     Dates: start: 20150318, end: 20150318
  5. DELTACORTENE [Concomitant]
     Active Substance: PREDNISONE
     Indication: HYPERCALCAEMIA
  6. RANITIDINE [Concomitant]
     Active Substance: RANITIDINE\RANITIDINE HYDROCHLORIDE
     Indication: PROPHYLAXIS
     Route: 065
     Dates: start: 20150318, end: 20150319
  7. URSODEOXYCHOLIC ACID [Concomitant]
     Active Substance: URSODIOL
     Indication: CHOLESTASIS
     Route: 065
     Dates: start: 2011
  8. RABEPRAZOLE [Concomitant]
     Active Substance: RABEPRAZOLE
     Indication: PROPHYLAXIS
     Route: 065
     Dates: start: 20131122
  9. OCTREOTIDE ACETATE. [Concomitant]
     Active Substance: OCTREOTIDE ACETATE
     Indication: PANCREATIC NEUROENDOCRINE TUMOUR
     Route: 065
     Dates: start: 20131108, end: 20150316

REACTIONS (8)
  - Diarrhoea [Recovered/Resolved]
  - Dermatitis [Recovered/Resolved]
  - Drug hypersensitivity [Recovered/Resolved]
  - Hypomagnesaemia [Recovered/Resolved]
  - Hypercalcaemia [Recovering/Resolving]
  - Pyrexia [Recovering/Resolving]
  - Headache [Recovered/Resolved]
  - Hypokalaemia [Recovered/Resolved]

NARRATIVE: CASE EVENT DATE: 20150310
